FAERS Safety Report 5884202-3 (Version None)
Quarter: 2008Q3

REPORT INFORMATION
  Report Type: 
  Country: None (occurrence: None)
  Receive Date: 20080915
  Receipt Date: 20080909
  Transmission Date: 20090109
  Serious: No
  Sender: FDA-Public Use
  Company Number: DE-AVENTIS-200713023DE

PATIENT
  Sex: Male

DRUGS (1)
  1. ARAVA [Suspect]
     Route: 048

REACTIONS (1)
  - PATERNAL DRUGS AFFECTING FOETUS [None]
